FAERS Safety Report 11674772 (Version 2)
Quarter: 2015Q4

REPORT INFORMATION
  Report Type: Spontaneous
  Country: US (occurrence: US)
  Receive Date: 20151027
  Receipt Date: 20151104
  Transmission Date: 20160304
  Serious: No
  Sender: FDA-Public Use
  Company Number: US-ELI_LILLY_AND_COMPANY-US201001001288

PATIENT
  Age: 67 Year
  Sex: Female

DRUGS (9)
  1. SOMA [Concomitant]
     Active Substance: CARISOPRODOL
  2. VITAMIN D [Concomitant]
     Active Substance: CHOLECALCIFEROL
  3. LISINOPRIL. [Concomitant]
     Active Substance: LISINOPRIL
  4. FORTEO [Suspect]
     Active Substance: TERIPARATIDE
     Indication: OSTEOPOROSIS
     Dosage: 20 UG, DAILY (1/D)
     Route: 065
     Dates: start: 200912
  5. RYTHMOL [Concomitant]
     Active Substance: PROPAFENONE HYDROCHLORIDE
  6. FORTEO [Suspect]
     Active Substance: TERIPARATIDE
     Dosage: 20 UG, QD
     Route: 065
  7. FORTEO [Suspect]
     Active Substance: TERIPARATIDE
     Dosage: 20 UG, DAILY (1/D)
     Route: 065
  8. FORTEO [Suspect]
     Active Substance: TERIPARATIDE
     Dosage: 20 UG, DAILY (1/D)
     Route: 065
  9. BABY ASPIRIN [Concomitant]
     Active Substance: ASPIRIN

REACTIONS (10)
  - Urinary tract infection [Unknown]
  - Pyrexia [Unknown]
  - Osteoarthritis [Not Recovered/Not Resolved]
  - Injection site bruising [Not Recovered/Not Resolved]
  - Abdominal pain upper [Unknown]
  - Chills [Unknown]
  - Injection site pain [Unknown]
  - Back pain [Not Recovered/Not Resolved]
  - Injection site reaction [Unknown]
  - Therapeutic response decreased [Unknown]

NARRATIVE: CASE EVENT DATE: 200912
